FAERS Safety Report 6425021-9 (Version None)
Quarter: 2009Q4

REPORT INFORMATION
  Report Type: 
  Country: None (occurrence: None)
  Receive Date: 20091030
  Receipt Date: 20091030
  Transmission Date: 20100525
  Serious: Yes (Hospitalization)
  Sender: FDA-Public Use
  Company Number: None

PATIENT
  Age: 86 Year
  Sex: Male
  Weight: 75.7507 kg

DRUGS (1)
  1. ATIVAN [Suspect]
     Indication: SEDATIVE THERAPY
     Dosage: 1 MG. X 2 5 1/2 HRS APART 2 SHOTS WITHIN 5 1/2 HRS
     Dates: start: 20091013

REACTIONS (9)
  - AGGRESSION [None]
  - AGITATION [None]
  - COMMUNICATION DISORDER [None]
  - DELUSION [None]
  - DYSURIA [None]
  - FEEDING DISORDER [None]
  - HALLUCINATION [None]
  - SPEECH DISORDER [None]
  - TREMOR [None]
